FAERS Safety Report 20540413 (Version 1)
Quarter: 2022Q1

REPORT INFORMATION
  Report Type: Spontaneous
  Country: US (occurrence: US)
  Receive Date: 20220302
  Receipt Date: 20220302
  Transmission Date: 20220423
  Serious: Yes (Other)
  Sender: FDA-Public Use
  Company Number: US-BAUSCH-BL-2022-005501

PATIENT
  Age: 66 Year
  Sex: Female

DRUGS (1)
  1. VISUDYNE [Suspect]
     Active Substance: VERTEPORFIN
     Indication: Product used for unknown indication
     Route: 065
     Dates: start: 20220214, end: 202202

REACTIONS (1)
  - Chloropsia [Not Recovered/Not Resolved]

NARRATIVE: CASE EVENT DATE: 20220201
